FAERS Safety Report 4492525-8 (Version None)
Quarter: 2004Q4

REPORT INFORMATION
  Report Type: 
  Country: None (occurrence: None)
  Receive Date: 20041102
  Receipt Date: 20041102
  Transmission Date: 20050328
  Serious: Yes (Hospitalization)
  Sender: FDA-Public Use
  Company Number: None

PATIENT
  Age: 54 Year
  Sex: Female

DRUGS (6)
  1. ASPIRIN [Suspect]
     Indication: MYALGIA
     Dosage: 4 TABLETS DAILY ORAL
     Route: 048
  2. IBUPROFEN [Suspect]
     Indication: MYALGIA
     Dosage: ORAL
     Route: 048
  3. METOPROLOL [Concomitant]
  4. ENALAPRIL [Concomitant]
  5. ATORVASTATIN CALCIUM [Concomitant]
  6. NITROGLYCERIN [Concomitant]

REACTIONS (2)
  - DYSPNOEA [None]
  - UPPER GASTROINTESTINAL HAEMORRHAGE [None]
